FAERS Safety Report 6313821-5 (Version None)
Quarter: 2009Q3

REPORT INFORMATION
  Report Type: 
  Country: None (occurrence: None)
  Receive Date: 20090814
  Receipt Date: 20090731
  Transmission Date: 20100115
  Serious: Yes (Other)
  Sender: FDA-Public Use
  Company Number: 2009BM000156

PATIENT
  Age: 16 Year
  Sex: Male

DRUGS (5)
  1. NAGLAZYME [Suspect]
     Indication: MUCOPOLYSACCHARIDOSIS VI
     Dosage: 5 VIALS; QW; IVDRIP
     Route: 041
     Dates: start: 20080901
  2. PHENOBARBITAL [Concomitant]
  3. PHENYTOIN [Concomitant]
  4. PROMETHAZINE [Concomitant]
  5. DIPYRONE [Concomitant]

REACTIONS (7)
  - GRAND MAL CONVULSION [None]
  - HEART RATE INCREASED [None]
  - INCREASED BRONCHIAL SECRETION [None]
  - INFUSION RELATED REACTION [None]
  - OXYGEN SATURATION DECREASED [None]
  - RESPIRATORY DISORDER [None]
  - TRACHEAL STENOSIS [None]
